FAERS Safety Report 6130592-6 (Version None)
Quarter: 2009Q1

REPORT INFORMATION
  Report Type: 
  Country: None (occurrence: None)
  Receive Date: 20090325
  Receipt Date: 20090316
  Transmission Date: 20090719
  Serious: Yes (Death, Other)
  Sender: FDA-Public Use
  Company Number: GB-RANBAXY-2009RR-22779

PATIENT
  Age: 18 Year
  Sex: Female
  Weight: 55 kg

DRUGS (1)
  1. PARACETAMOL [Suspect]
     Dosage: 7 G, UNK
     Route: 048
     Dates: start: 20090201, end: 20090201

REACTIONS (2)
  - HEPATOTOXICITY [None]
  - INTENTIONAL OVERDOSE [None]
